FAERS Safety Report 8588706-4 (Version None)
Quarter: 2012Q3

REPORT INFORMATION
  Report Type: 
  Country: None (occurrence: None)
  Receive Date: 20120813
  Receipt Date: 20120809
  Transmission Date: 20120928
  Serious: Yes (Other)
  Sender: FDA-Public Use
  Company Number: PHHY2011NL65354

PATIENT
  Sex: Male

DRUGS (15)
  1. ZOMETA [Suspect]
     Indication: PROSTATE CANCER
     Dosage: 4 MG/5 ML 1X PER 28 DAYS
     Dates: start: 20110422
  2. ZOMETA [Suspect]
     Dosage: 4 MG/5 ML 1X PER 28 DAYS
     Dates: start: 20120713
  3. ZOMETA [Suspect]
     Dosage: 4 MG/5 ML 1X PER 28 DAYS
     Dates: start: 20110913
  4. ELIGARD [Suspect]
     Dosage: UNK UKN, UNK
  5. ZOMETA [Suspect]
     Dosage: 4 MG/5 ML 1X PER 28 DAYS
     Dates: start: 20110719
  6. ZOMETA [Suspect]
     Dosage: 4 MG/5 ML 1X PER 28 DAYS
     Dates: start: 20110816
  7. ZOMETA [Suspect]
     Dosage: 4 MG/5 ML 1X PER 28 DAYS
     Dates: start: 20120418
  8. DIAZEPAM [Concomitant]
     Dosage: UNK UKN, UNK
  9. BICALUTAMIDE [Concomitant]
     Dosage: UNK UKN, UNK
  10. ZOMETA [Suspect]
     Dosage: 4 MG/5 ML 1X PER 28 DAYS
     Dates: start: 20120516
  11. PANTOPRAZOLE [Concomitant]
     Dosage: UNK UKN, UNK
  12. ZOMETA [Suspect]
     Dosage: 4 MG/5 ML 1X PER 28 DAYS
     Dates: start: 20111010
  13. ZOMETA [Suspect]
     Dosage: 4 MG/5 ML 1X PER 28 DAYS
     Dates: start: 20120615
  14. DICLOFENAC [Concomitant]
     Dosage: UNK UKN, UNK
  15. NAPROXEN [Concomitant]
     Dosage: UNK UKN, UNK

REACTIONS (6)
  - DRY MOUTH [None]
  - PROSTATIC SPECIFIC ANTIGEN INCREASED [None]
  - FATIGUE [None]
  - BONE PAIN [None]
  - TERMINAL STATE [None]
  - ASTHENIA [None]
